FAERS Safety Report 6955670-0 (Version None)
Quarter: 2010Q3

REPORT INFORMATION
  Report Type: 
  Country: None (occurrence: None)
  Receive Date: 20100830
  Receipt Date: 20100818
  Transmission Date: 20110219
  Serious: Yes (Death, Other)
  Sender: FDA-Public Use
  Company Number: DE-ROCHE-705392

PATIENT
  Sex: Female
  Weight: 52 kg

DRUGS (2)
  1. AVASTIN [Suspect]
     Dosage: GIVEN TWICE
     Route: 042
     Dates: start: 20100224, end: 20100406
  2. DOCETAXEL [Concomitant]
     Route: 042
     Dates: start: 20100224

REACTIONS (3)
  - HYPONATRAEMIA [None]
  - MALIGNANT NEOPLASM PROGRESSION [None]
  - POLYNEUROPATHY [None]
